FAERS Safety Report 7044620-7 (Version None)
Quarter: 2010Q4

REPORT INFORMATION
  Report Type: 
  Country: None (occurrence: None)
  Receive Date: 20101014
  Receipt Date: 20100514
  Transmission Date: 20110411
  Serious: Yes (Hospitalization, Other)
  Sender: FDA-Public Use
  Company Number: US-BAYER-201013347NA

PATIENT
  Age: 29 Year
  Sex: Female
  Weight: 60 kg

DRUGS (13)
  1. YASMIN [Suspect]
     Indication: CONTRACEPTION
     Route: 048
  2. YAZ [Suspect]
     Indication: CONTRACEPTION
     Route: 048
     Dates: start: 20070101, end: 20080601
  3. MINOCYCLINE HCL [Concomitant]
     Route: 065
     Dates: start: 19990101, end: 20070101
  4. DORYX [Concomitant]
     Indication: ACNE
     Route: 065
     Dates: start: 20091101, end: 20100101
  5. SOLU-MEDROL [Concomitant]
     Route: 042
     Dates: start: 20080601
  6. ASPIRIN [Concomitant]
     Route: 048
     Dates: start: 20080601
  7. ALPRAZOLAM [Concomitant]
     Indication: ANXIETY
     Route: 065
     Dates: start: 20080601, end: 20080601
  8. AMBIEN [Concomitant]
     Indication: SLEEP DISORDER
     Route: 065
     Dates: start: 20080601
  9. PROTONIX [Concomitant]
     Route: 065
     Dates: start: 20080601, end: 20080601
  10. ZOLPIDEM TARTRATE [Concomitant]
     Route: 065
     Dates: start: 20080601, end: 20080601
  11. NOVOLOG [Concomitant]
     Route: 065
     Dates: start: 20080601, end: 20080601
  12. TYLENOL W/ CODEINE NO. 3 [Concomitant]
     Route: 065
     Dates: start: 20080601
  13. XANAX [Concomitant]
     Route: 065
     Dates: start: 20080601

REACTIONS (1)
  - IIIRD NERVE PARALYSIS [None]
